FAERS Safety Report 5779781-0 (Version None)
Quarter: 2008Q2

REPORT INFORMATION
  Report Type: 
  Country: None (occurrence: None)
  Receive Date: 20080618
  Receipt Date: 20080605
  Transmission Date: 20081010
  Serious: Yes (Hospitalization)
  Sender: FDA-Public Use
  Company Number: 230484J08CAN

PATIENT
  Age: 51 Year
  Sex: Female

DRUGS (3)
  1. REBIF [Suspect]
     Indication: MULTIPLE SCLEROSIS
     Dates: start: 20031015, end: 20060928
  2. TYLOX /00446701/ [Concomitant]
  3. CYANOCOBALAMIN-TA-NNIN COMPLEX [Concomitant]

REACTIONS (7)
  - BALANCE DISORDER [None]
  - CYSTITIS [None]
  - GAIT DISTURBANCE [None]
  - HYPOAESTHESIA [None]
  - INJECTION SITE BRUISING [None]
  - INJECTION SITE PAIN [None]
  - MUSCULAR WEAKNESS [None]
